FAERS Safety Report 18134918 (Version 1)
Quarter: 2020Q3

REPORT INFORMATION
  Report Type: Other
  Country: MX (occurrence: MX)
  Receive Date: 20200811
  Receipt Date: 20200811
  Transmission Date: 20201103
  Serious: Yes (Other)
  Sender: FDA-Public Use
  Company Number: MX-ROCHE-2657445

PATIENT
  Age: 50 Year
  Sex: Female

DRUGS (1)
  1. ROACTEMRA [Suspect]
     Active Substance: TOCILIZUMAB
     Indication: RHEUMATOID ARTHRITIS
     Route: 058
     Dates: start: 20190117

REACTIONS (3)
  - Hypersensitivity [Recovered/Resolved]
  - Urticaria [Unknown]
  - Syncope [Unknown]

NARRATIVE: CASE EVENT DATE: 20200602
